FAERS Safety Report 18947560 (Version 1)
Quarter: 2021Q1

REPORT INFORMATION
  Report Type: Report from Study
  Country: None (occurrence: AU)
  Receive Date: 20210226
  Receipt Date: 20210226
  Transmission Date: 20210420
  Serious: Yes (Hospitalization)
  Sender: FDA-Public Use
  Company Number: AU-ABBVIE-21K-008-3785056-00

PATIENT
  Age: 78 Year
  Sex: Male

DRUGS (1)
  1. LUPRON DEPOT [Suspect]
     Active Substance: LEUPROLIDE ACETATE
     Indication: PROSTATE CANCER
     Route: 030
     Dates: start: 202007

REACTIONS (5)
  - Vomiting [Unknown]
  - Pyrexia [Unknown]
  - Listless [Unknown]
  - Malaise [Unknown]
  - Urine abnormality [Unknown]

NARRATIVE: CASE EVENT DATE: 20210220
